FAERS Safety Report 14817063 (Version 1)
Quarter: 2018Q2

REPORT INFORMATION
  Report Type: Spontaneous
  Country: US (occurrence: US)
  Receive Date: 20180426
  Receipt Date: 20180426
  Transmission Date: 20180711
  Serious: No
  Sender: FDA-Public Use
  Company Number: US-PFIZER INC-2018165609

PATIENT
  Age: 59 Year
  Sex: Female
  Weight: 103 kg

DRUGS (4)
  1. ATORVASTATIN [Concomitant]
     Active Substance: ATORVASTATIN
     Indication: BLOOD CHOLESTEROL INCREASED
     Dosage: 20 MG, 1X/DAY
     Route: 048
  2. SOMAVERT [Suspect]
     Active Substance: PEGVISOMANT
     Indication: ACROMEGALY
     Dosage: 20 MG, 1X/DAY
     Route: 058
  3. CABERGOLINE. [Concomitant]
     Active Substance: CABERGOLINE
     Indication: ACROMEGALY
     Dosage: 0.5 MG/ONE AND HALF TABLETS TWO TIMES A WEEK
  4. BISOPROLOL /HCTZ [Concomitant]
     Indication: HYPERTENSION
     Dosage: [BISOPROLOL FUMARATE 2.5MG]/[ HYDROCHLOROTHIAZIDE 6.25MG],TAKE IT IN MORNING WITH THE GLASS OF WATER
     Route: 048

REACTIONS (2)
  - Injection site erythema [Not Recovered/Not Resolved]
  - Injection related reaction [Unknown]

NARRATIVE: CASE EVENT DATE: 20180403
